FAERS Safety Report 5632181-6 (Version None)
Quarter: 2008Q1

REPORT INFORMATION
  Report Type: 
  Country: None (occurrence: None)
  Receive Date: 20080220
  Receipt Date: 20080214
  Transmission Date: 20080703
  Serious: Yes (Hospitalization)
  Sender: FDA-Public Use
  Company Number: HK-AVENTIS-200811498GDDC

PATIENT
  Age: 62 Year
  Sex: Female
  Weight: 71 kg

DRUGS (5)
  1. TAXOTERE [Suspect]
     Indication: BREAST CANCER
     Route: 042
     Dates: start: 20070906, end: 20070927
  2. CYCLOPHOSPHAMIDE [Suspect]
     Indication: BREAST CANCER
     Route: 042
     Dates: start: 20070906, end: 20070927
  3. KYTRIL                             /01178101/ [Concomitant]
     Route: 042
     Dates: start: 20070927, end: 20070927
  4. DEXAMETHASONE TAB [Concomitant]
     Route: 042
     Dates: start: 20070927, end: 20070927
  5. DEXAMETHASONE TAB [Concomitant]
     Route: 048
     Dates: start: 20070926, end: 20070930

REACTIONS (2)
  - BLOOD GLUCOSE INCREASED [None]
  - NEUTROPENIA [None]
